FAERS Safety Report 13503322 (Version 3)
Quarter: 2017Q3

REPORT INFORMATION
  Report Type: Spontaneous
  Country: CZ (occurrence: CZ)
  Receive Date: 20170502
  Receipt Date: 20170721
  Transmission Date: 20171127
  Serious: Yes (Other)
  Sender: FDA-Public Use
  Company Number: CZ-PFIZER INC-2017186652

PATIENT
  Age: 89 Year
  Sex: Female
  Weight: 44 kg

DRUGS (12)
  1. ALENDRONATE [Concomitant]
     Active Substance: ALENDRONATE SODIUM
     Dosage: 70 MG, ONCE WEEKLY
     Dates: start: 2006
  2. DITHIADEN [Concomitant]
     Active Substance: BISULEPIN
     Dosage: 2 MG,1X/DAY (0-0-1)
  3. CORDARONE [Suspect]
     Active Substance: AMIODARONE HYDROCHLORIDE
     Dosage: 200 MG, 1X/DAY (1-0-0)
     Route: 048
  4. VEROSPIRON [Concomitant]
     Active Substance: SPIRONOLACTONE
     Dosage: 50 MG, 2X/DAY (1-0-1)
  5. PENTOMER [Concomitant]
     Dosage: 400 MG, 3X/DAY (1-1-1)
  6. SECATOXIN GTT [Concomitant]
     Dosage: 20 DF, 3X/DAY (20-20-20 DROPS)
  7. DILATREND [Interacting]
     Active Substance: CARVEDILOL
     Dosage: 6.25 MG, 1X/DAY (1-0-0)
     Route: 048
  8. FURON [Concomitant]
     Active Substance: FUROSEMIDE
     Dosage: 40 MG, UNK (1/2-0-0)
  9. WARFARIN [Concomitant]
     Active Substance: WARFARIN
     Indication: ATRIAL FIBRILLATION
     Dosage: 3 MG, 1X/DAY (1-0-0 (INR - 2.5))
  10. DIGOXIN. [Interacting]
     Active Substance: DIGOXIN
     Dosage: 0.125 UG, 1X/DAY (1-0-0)
     Route: 048
  11. AIRFLUSAN FORSPIRO [Concomitant]
     Dosage: UNK [SALMETEROL 50 UG/FLUTICASONE 25 UG], 2X/DAY (1-0-1)
  12. MILURIT [Concomitant]
     Active Substance: ALLOPURINOL
     Dosage: 300 MG, 1X/DAY (1-0-0)

REACTIONS (8)
  - Heart rate decreased [Unknown]
  - Diarrhoea [Unknown]
  - Nausea [Unknown]
  - Toxicity to various agents [Unknown]
  - Drug interaction [Unknown]
  - Cardioactive drug level [Unknown]
  - Vision blurred [Unknown]
  - Vomiting [Unknown]
